FAERS Safety Report 8594097 (Version 2)
Quarter: 2013Q1

REPORT INFORMATION
  Report Type: Report from Study
  Country: BR (occurrence: BR)
  Receive Date: 20120604
  Receipt Date: 20130122
  Transmission Date: 20140127
  Serious: Yes (Death, Hospitalization)
  Sender: FDA-Public Use
  Company Number: BR-ROCHE-1072821

PATIENT
  Age: 26 Year
  Sex: Female
  Weight: 54 kg

DRUGS (5)
  1. ACTEMRA [Suspect]
     Indication: JUVENILE IDIOPATHIC ARTHRITIS
     Route: 065
     Dates: start: 201109, end: 201111
  2. PANTOPRAZOLE SODIUM [Concomitant]
  3. NEUTROFER [Concomitant]
  4. METICORTEN [Concomitant]
  5. CALCIUM 10% [Concomitant]

REACTIONS (3)
  - Hepatitis fulminant [Fatal]
  - Alopecia [Unknown]
  - Blood cholesterol increased [Unknown]
